FAERS Safety Report 20298502 (Version 3)
Quarter: 2022Q1

REPORT INFORMATION
  Report Type: Report from Study
  Country: US (occurrence: US)
  Receive Date: 20220105
  Receipt Date: 20220225
  Transmission Date: 20220423
  Serious: No
  Sender: FDA-Public Use
  Company Number: US-NOVARTISTESTPH-NVSC2021US301498

PATIENT
  Sex: Female

DRUGS (1)
  1. AFINITOR [Suspect]
     Active Substance: EVEROLIMUS
     Indication: Renal transplant
     Dosage: 5 MG (DISPERZ)
     Route: 048

REACTIONS (2)
  - Renal disorder [Unknown]
  - Prescription drug used without a prescription [Unknown]
